FAERS Safety Report 5084298-5 (Version None)
Quarter: 2006Q3

REPORT INFORMATION
  Report Type: 
  Country: None (occurrence: None)
  Receive Date: 20060816
  Receipt Date: 20060808
  Transmission Date: 20061208
  Serious: Yes (Hospitalization, Other)
  Sender: FDA-Public Use
  Company Number: 2006-05-1903

PATIENT
  Age: 77 Year
  Sex: Female
  Weight: 98.8842 kg

DRUGS (14)
  1. TEMODAR [Suspect]
     Indication: METASTATIC MALIGNANT MELANOMA
     Dosage: 315MGQDX7Q ORAL
     Route: 048
     Dates: start: 20060426
  2. SUNITINIB MALATE [Suspect]
     Indication: METASTATIC MALIGNANT MELANOMA
     Dosage: 25MGD8-28Q28D ORAL
     Route: 048
     Dates: start: 20060503, end: 20060521
  3. SKELAXIN [Concomitant]
  4. DIOVAN [Concomitant]
  5. CLARINEX [Concomitant]
  6. MOBIC [Concomitant]
  7. NEXIUM [Concomitant]
  8. INDAPAMIDE [Concomitant]
  9. PEPCID [Concomitant]
  10. QUININE SULFATE [Concomitant]
  11. SEREVENT [Concomitant]
  12. AZMACORT [Concomitant]
  13. REFLEX FOR LEG INFECTION [Concomitant]
  14. ALEVE FOR LEG INFECTION [Concomitant]

REACTIONS (23)
  - ANOREXIA [None]
  - ASTHENIA [None]
  - COLITIS [None]
  - DEHYDRATION [None]
  - DIARRHOEA [None]
  - DIVERTICULUM INTESTINAL [None]
  - DRY MOUTH [None]
  - FATIGUE [None]
  - HYPOVOLAEMIA [None]
  - LIVER DISORDER [None]
  - METASTASES TO LYMPH NODES [None]
  - MUCOSAL INFLAMMATION [None]
  - NAUSEA [None]
  - OESOPHAGEAL CANDIDIASIS [None]
  - ORAL PAIN [None]
  - PANCYTOPENIA [None]
  - PRODUCTIVE COUGH [None]
  - PYREXIA [None]
  - RENAL DISORDER [None]
  - RENAL FAILURE ACUTE [None]
  - SPLENIC LESION [None]
  - URINARY TRACT INFECTION [None]
  - VOMITING [None]
